FAERS Safety Report 16298316 (Version 4)
Quarter: 2019Q4

REPORT INFORMATION
  Report Type: Report from Study
  Country: US (occurrence: US)
  Receive Date: 20190510
  Receipt Date: 20191014
  Transmission Date: 20200122
  Serious: Yes (Other)
  Sender: FDA-Public Use
  Company Number: US-TAKEDA-2019TUS027860

PATIENT
  Age: 65 Year
  Sex: Female

DRUGS (2)
  1. IRON [Concomitant]
     Active Substance: IRON
     Dosage: UNK
  2. VEDOLIZUMAB [Suspect]
     Active Substance: VEDOLIZUMAB
     Indication: COLITIS ULCERATIVE
     Dosage: 300 MILLIGRAM
     Route: 042
     Dates: start: 20180730

REACTIONS (15)
  - Anaemia [Not Recovered/Not Resolved]
  - Dermatochalasis [Unknown]
  - Clostridium difficile infection [Unknown]
  - Hypersensitivity [Unknown]
  - Nasal crusting [Unknown]
  - Eye discharge [Unknown]
  - Nasal ulcer [Recovered/Resolved]
  - Sinusitis [Not Recovered/Not Resolved]
  - Therapeutic reaction time decreased [Unknown]
  - Weight decreased [Not Recovered/Not Resolved]
  - Blood cholesterol increased [Unknown]
  - Hordeolum [Unknown]
  - Vitamin B12 decreased [Unknown]
  - Blood iron decreased [Recovered/Resolved]
  - Haematochezia [Unknown]

NARRATIVE: CASE EVENT DATE: 201811
